FAERS Safety Report 17210413 (Version 2)
Quarter: 2021Q3

REPORT INFORMATION
  Report Type: Spontaneous
  Country: US (occurrence: US)
  Receive Date: 20191227
  Receipt Date: 20210812
  Transmission Date: 20211014
  Serious: Yes (Other)
  Sender: FDA-Public Use
  Company Number: US-CELGENEUS-USA-20191208294

PATIENT
  Age: 16 Year
  Sex: Female
  Weight: 72 kg

DRUGS (29)
  1. VENETOCLAX. [Suspect]
     Active Substance: VENETOCLAX
     Dosage: 200 MILLIGRAM
     Route: 048
     Dates: start: 20190807, end: 20190807
  2. DECITABINE. [Suspect]
     Active Substance: DECITABINE
     Indication: ACUTE MYELOID LEUKAEMIA
     Dosage: 35 MILLIGRAM
     Route: 041
     Dates: start: 20191004, end: 20191008
  3. DIPHENHYDRAMINE. [Concomitant]
     Active Substance: DIPHENHYDRAMINE
     Dosage: 150 MILLIGRAM
     Route: 041
     Dates: start: 20190913, end: 20190914
  4. DIPHENHYDRAMINE. [Concomitant]
     Active Substance: DIPHENHYDRAMINE
     Dosage: 150 MILLIGRAM
     Route: 041
     Dates: start: 20191004, end: 20191004
  5. DIPHENHYDRAMINE. [Concomitant]
     Active Substance: DIPHENHYDRAMINE
     Route: 041
     Dates: start: 20191126
  6. GRANISETRON [Concomitant]
     Active Substance: GRANISETRON
     Indication: NAUSEA
     Dosage: 1 MILLIGRAM
     Route: 048
     Dates: start: 20190826
  7. DIPHENHYDRAMINE. [Concomitant]
     Active Substance: DIPHENHYDRAMINE
     Dosage: 50 MILLIGRAM
     Route: 048
     Dates: start: 20191004, end: 20191004
  8. DIPHENHYDRAMINE. [Concomitant]
     Active Substance: DIPHENHYDRAMINE
     Dosage: 50 MILLIGRAM
     Route: 041
     Dates: start: 20191203, end: 20191205
  9. OLANZAPINE. [Concomitant]
     Active Substance: OLANZAPINE
     Indication: VOMITING
     Dosage: 5 MILLIGRAM
     Route: 048
     Dates: start: 20191109
  10. VIDAZA [Suspect]
     Active Substance: AZACITIDINE
     Indication: ACUTE MYELOID LEUKAEMIA
     Route: 041
     Dates: start: 20190809, end: 20190905
  11. LEUPRORELIN [Concomitant]
     Active Substance: LEUPROLIDE ACETATE
     Indication: CONTRACEPTION
     Dosage: 11.25 MILLIGRAM
     Route: 030
     Dates: start: 20190509
  12. DIPHENHYDRAMINE. [Concomitant]
     Active Substance: DIPHENHYDRAMINE
     Dosage: 50 MILLIGRAM
     Route: 041
     Dates: start: 20190914, end: 20190917
  13. LORAZEPAM. [Concomitant]
     Active Substance: LORAZEPAM
     Indication: NAUSEA
     Dosage: 1 MILLIGRAM
     Route: 065
     Dates: start: 20190821
  14. DIPHENHYDRAMINE. [Concomitant]
     Active Substance: DIPHENHYDRAMINE
     Dosage: 100 MILLIGRAM
     Route: 041
     Dates: start: 20190805, end: 20190808
  15. DIPHENHYDRAMINE. [Concomitant]
     Active Substance: DIPHENHYDRAMINE
     Dosage: 75 MILLIGRAM
     Route: 041
     Dates: start: 20191111, end: 20191113
  16. DIPHENHYDRAMINE. [Concomitant]
     Active Substance: DIPHENHYDRAMINE
     Dosage: 150 MILLIGRAM
     Route: 041
     Dates: start: 20191122, end: 20191126
  17. OLANZAPINE. [Concomitant]
     Active Substance: OLANZAPINE
     Indication: NAUSEA
     Dosage: 5 MILLIGRAM
     Route: 048
     Dates: start: 20190827, end: 20190918
  18. LORAZEPAM. [Concomitant]
     Active Substance: LORAZEPAM
     Indication: VOMITING
  19. VENETOCLAX. [Suspect]
     Active Substance: VENETOCLAX
     Indication: ACUTE MYELOID LEUKAEMIA
     Dosage: 100 MILLIGRAM
     Route: 048
     Dates: start: 20190806, end: 20190806
  20. GRANISETRON [Concomitant]
     Active Substance: GRANISETRON
     Indication: VOMITING
  21. VENETOCLAX. [Suspect]
     Active Substance: VENETOCLAX
     Dosage: 400 MILLIGRAM
     Route: 048
     Dates: start: 20190808, end: 20191108
  22. DIPHENHYDRAMINE. [Concomitant]
     Active Substance: DIPHENHYDRAMINE
     Indication: PREMEDICATION
     Dosage: 225 MILLIGRAM
     Route: 041
     Dates: start: 20190730, end: 20190805
  23. DIPHENHYDRAMINE. [Concomitant]
     Active Substance: DIPHENHYDRAMINE
     Dosage: 50 MILLIGRAM
     Route: 048
     Dates: start: 20191024, end: 20191024
  24. DIPHENHYDRAMINE. [Concomitant]
     Active Substance: DIPHENHYDRAMINE
     Dosage: 25 MILLIGRAM
     Route: 041
     Dates: start: 20191109, end: 20191109
  25. DIPHENHYDRAMINE. [Concomitant]
     Active Substance: DIPHENHYDRAMINE
     Dosage: 150 MILLIGRAM
     Route: 041
     Dates: start: 20190908, end: 20190914
  26. NORETHISTERONE [Concomitant]
     Active Substance: NORETHINDRONE
     Indication: HEAVY MENSTRUAL BLEEDING
     Dosage: 10 MILLIGRAM
     Route: 048
     Dates: start: 20190510
  27. BACTRIM [Concomitant]
     Active Substance: SULFAMETHOXAZOLE\TRIMETHOPRIM
     Indication: ANTIFUNGAL PROPHYLAXIS
     Dosage: 2 TABLET
     Route: 048
     Dates: start: 20190728
  28. DIPHENHYDRAMINE. [Concomitant]
     Active Substance: DIPHENHYDRAMINE
     Dosage: 200 MILLIGRAM
     Route: 041
     Dates: start: 20191005, end: 20191006
  29. DIPHENHYDRAMINE. [Concomitant]
     Active Substance: DIPHENHYDRAMINE
     Dosage: 50 MILLIGRAM
     Route: 048
     Dates: start: 20191108, end: 20191108

REACTIONS (1)
  - Norovirus infection [Recovered/Resolved]

NARRATIVE: CASE EVENT DATE: 20191121
